FAERS Safety Report 9639866 (Version 1)
Quarter: 2013Q4

REPORT INFORMATION
  Report Type: Spontaneous
  Country: US (occurrence: None)
  Receive Date: 20131021
  Receipt Date: 20131021
  Transmission Date: 20140711
  Serious: No
  Sender: FDA-Public Use
  Company Number: None

PATIENT
  Age: 24 Year
  Sex: Female
  Weight: 90.72 kg

DRUGS (1)
  1. CYMBALTA [Suspect]
     Indication: PAIN
     Dosage: 2, ONCE DAILY

REACTIONS (2)
  - Chest pain [None]
  - Insomnia [None]
